FAERS Safety Report 9630327 (Version 1)
Quarter: 2013Q4

REPORT INFORMATION
  Report Type: Spontaneous
  Country: US (occurrence: US)
  Receive Date: 20131018
  Receipt Date: 20131018
  Transmission Date: 20140711
  Serious: Yes (Hospitalization)
  Sender: FDA-Public Use
  Company Number: US-AMGEN-USASP2013071811

PATIENT
  Age: 79 Year
  Sex: Female

DRUGS (5)
  1. PROLIA [Suspect]
     Indication: OSTEOPOROSIS POSTMENOPAUSAL
     Dosage: UNK
     Route: 065
     Dates: start: 2010
  2. RECLAST [Concomitant]
     Dosage: UNK
     Dates: start: 2010
  3. PREDNISONE [Concomitant]
  4. VITAMIN D                          /00107901/ [Concomitant]
  5. CALCIUM [Concomitant]

REACTIONS (7)
  - Oesophageal disorder [Unknown]
  - Malaise [Unknown]
  - Vascular pain [Unknown]
  - Hypertension [Unknown]
  - Blood cholesterol increased [Unknown]
  - Influenza like illness [Unknown]
  - Vomiting [Unknown]
